FAERS Safety Report 9893217 (Version 1)
Quarter: 2014Q1

REPORT INFORMATION
  Report Type: Report from Study
  Country: AR (occurrence: AR)
  Receive Date: 20140213
  Receipt Date: 20140213
  Transmission Date: 20141002
  Serious: Yes (Other)
  Sender: FDA-Public Use
  Company Number: PHHY2014AR017291

PATIENT
  Sex: Male

DRUGS (2)
  1. EXFORGE [Suspect]
     Indication: AORTIC STENOSIS
     Dosage: 1 DF(160/10MG), PER DAY
     Route: 048
  2. EXFORGE [Suspect]
     Indication: OFF LABEL USE

REACTIONS (3)
  - Aortic stenosis [Recovered/Resolved]
  - Condition aggravated [Recovered/Resolved]
  - Depressed mood [Recovered/Resolved]
